FAERS Safety Report 20059220 (Version 2)
Quarter: 2022Q1

REPORT INFORMATION
  Report Type: Spontaneous
  Country: US (occurrence: US)
  Receive Date: 20211111
  Receipt Date: 20220131
  Transmission Date: 20220424
  Serious: No
  Sender: FDA-Public Use
  Company Number: US-PFIZER INC-202101490762

PATIENT
  Age: 66 Year
  Sex: Female
  Weight: 73.197 kg

DRUGS (13)
  1. IBRANCE [Suspect]
     Active Substance: PALBOCICLIB
     Indication: Breast cancer female
     Dosage: 125 MG, CYCLIC (DAILY DAYS 1-21 OF 28)
     Route: 048
     Dates: start: 20200415
  2. IBRANCE [Suspect]
     Active Substance: PALBOCICLIB
     Dosage: 75 MG, CYCLIC(DAILY X 21 DAYS THEN 7 DAYS OFF)
     Route: 048
     Dates: start: 20200415
  3. VITAMIN C [Concomitant]
     Active Substance: ASCORBIC ACID
     Dosage: 1000 MG
  4. VITAMIN E [Concomitant]
     Active Substance: .ALPHA.-TOCOPHEROL
     Dosage: 1000 IU
  5. ECHINACEA [Concomitant]
     Active Substance: ECHINACEA, UNSPECIFIED
     Dosage: 400 MG
  6. ACAI [EUTERPE OLERACEA] [Concomitant]
     Dosage: 500 MG
  7. LETROZOLE [Concomitant]
     Active Substance: LETROZOLE
     Dosage: 2.5 MG
  8. MAGNESIUM [Concomitant]
     Active Substance: MAGNESIUM
     Dosage: UNK
  9. FLONASE ALLERGY RELIEF [Concomitant]
     Active Substance: FLUTICASONE PROPIONATE
     Dosage: UNK
  10. BENADRYL [Concomitant]
     Active Substance: DIPHENHYDRAMINE HYDROCHLORIDE
     Dosage: UNK
  11. PAPAYA [Concomitant]
     Active Substance: PAPAYA
     Dosage: 100 MG
  12. SYNTHROID [Concomitant]
     Active Substance: LEVOTHYROXINE SODIUM
     Dosage: 125 UG
  13. EMERGEN-C [Concomitant]
     Active Substance: VITAMINS
     Dosage: 1000 MG

REACTIONS (17)
  - Fatigue [Unknown]
  - Oropharyngeal pain [Unknown]
  - Fungal infection [Unknown]
  - Thyroid disorder [Unknown]
  - White blood cell count decreased [Unknown]
  - Dental caries [Unknown]
  - Tooth loss [Unknown]
  - Glycosylated haemoglobin increased [Unknown]
  - Hypertension [Unknown]
  - Myalgia [Unknown]
  - Pain in extremity [Unknown]
  - Pain [Unknown]
  - Infection [Unknown]
  - Weight increased [Unknown]
  - Contusion [Unknown]
  - Limb discomfort [Unknown]
  - Dental implantation [Unknown]
